FAERS Safety Report 9706848 (Version 2)
Quarter: 2013Q4

REPORT INFORMATION
  Report Type: Report from Study
  Country: US (occurrence: US)
  Receive Date: 20131125
  Receipt Date: 20131125
  Transmission Date: 20140711
  Serious: Yes (Hospitalization)
  Sender: FDA-Public Use
  Company Number: US-MERCK-1310USA004253

PATIENT
  Age: 46 Year
  Sex: Male
  Weight: 102.95 kg

DRUGS (6)
  1. BLINDED ASENAPINE MALEATE-SCHIZOPHRENIA [Suspect]
     Indication: SCHIZOPHRENIA
     Dosage: UNK
     Route: 048
     Dates: start: 20130903, end: 20130926
  2. MK-9378 [Concomitant]
     Indication: DIABETES MELLITUS
     Dosage: 500 MG, BID
     Route: 048
     Dates: start: 2005
  3. PRAVACOL [Concomitant]
     Indication: HYPERCHOLESTEROLAEMIA
     Dosage: 20 MG, QD
     Route: 048
     Dates: start: 2002
  4. LOPRESSOR [Concomitant]
     Indication: HYPERCHOLESTEROLAEMIA
     Dosage: 50 MG, BID
     Route: 048
     Dates: start: 2002
  5. PRINIVIL [Concomitant]
     Indication: HYPERTENSION
     Dosage: 10 MG, BID
     Route: 048
     Dates: start: 2000
  6. LATUDA [Concomitant]
     Indication: SCHIZOPHRENIA
     Dosage: 80 MG, QD
     Route: 048
     Dates: start: 20130927

REACTIONS (1)
  - Diabetes mellitus [Recovered/Resolved]
